FAERS Safety Report 10213460 (Version 2)
Quarter: 2014Q2

REPORT INFORMATION
  Report Type: Spontaneous
  Country: US (occurrence: None)
  Receive Date: 20140529
  Receipt Date: 20140616
  Transmission Date: 20141212
  Serious: Yes (Hospitalization, Other)
  Sender: FDA-Public Use
  Company Number: ADR-2012-02029

PATIENT
  Sex: Female

DRUGS (3)
  1. LIORESAL [Suspect]
     Indication: MUSCLE SPASTICITY
     Dosage: 300 MCG/DAY
  2. TIZANIDINE [Suspect]
  3. DIAZEPAM [Concomitant]

REACTIONS (15)
  - Rebound effect [None]
  - Muscle spasticity [None]
  - Muscle spasms [None]
  - Orthopnoea [None]
  - Respiratory depression [None]
  - Muscle tightness [None]
  - Impaired healing [None]
  - Incorrect dose administered by device [None]
  - Drug withdrawal syndrome [None]
  - Sedation [None]
  - Hypotonia [None]
  - Coma [None]
  - Dyspnoea [None]
  - Overdose [None]
  - Bedridden [None]
